FAERS Safety Report 9520871 (Version 1)
Quarter: 2013Q1

REPORT INFORMATION
  Report Type: Spontaneous
  Country: US (occurrence: None)
  Receive Date: 20130305
  Receipt Date: 20130305
  Transmission Date: 20140127
  Serious: No
  Sender: FDA-Public Use
  Company Number: 163-21880-12011656

PATIENT
  Age: 74 Year
  Sex: Female

DRUGS (7)
  1. REVLIMID ( LENALIDOMIDE) (25 MILLIGRAM, CAPSULES) [Suspect]
     Indication: PLASMA CELL MYELOMA
     Dosage: 25MG, 1 IN 1 D, PO
     Route: 048
     Dates: start: 2009
  2. ACYCLOVIR (ACICLOVIR) [Concomitant]
  3. DIGOXIN (DIGOXIN) [Concomitant]
  4. LASIX (FUROSEMIDE) [Concomitant]
  5. METOPROLOL (METOPROLOL) [Concomitant]
  6. SERTRALINE (SERTRALINE) [Concomitant]
  7. COUMADIN (WARFARIN SODIUM) [Concomitant]

REACTIONS (3)
  - Full blood count decreased [None]
  - Asthenia [None]
  - Respiratory tract infection [None]
